FAERS Safety Report 25253784 (Version 1)
Quarter: 2025Q2

REPORT INFORMATION
  Report Type: Spontaneous
  Country: AU (occurrence: AU)
  Receive Date: 20250430
  Receipt Date: 20250430
  Transmission Date: 20250717
  Serious: Yes (Hospitalization)
  Sender: SANDOZ
  Company Number: None

PATIENT
  Age: 11 Year
  Sex: Male

DRUGS (6)
  1. FLUOXETINE HYDROCHLORIDE [Suspect]
     Active Substance: FLUOXETINE HYDROCHLORIDE
     Dosage: 10 MG, QD
     Route: 065
  2. FLUOXETINE HYDROCHLORIDE [Suspect]
     Active Substance: FLUOXETINE HYDROCHLORIDE
     Indication: Product used for unknown indication
     Dosage: 5 MG, QD
     Route: 048
     Dates: start: 20240920, end: 20240925
  3. FLUOXETINE HYDROCHLORIDE [Suspect]
     Active Substance: FLUOXETINE HYDROCHLORIDE
     Dosage: 5 MG, QD
     Route: 065
  4. FLUTICASONE PROPIONATE [Concomitant]
     Active Substance: FLUTICASONE PROPIONATE
     Indication: Product used for unknown indication
     Route: 065
  5. LORAZEPAM [Concomitant]
     Active Substance: LORAZEPAM
     Indication: Product used for unknown indication
     Dosage: 1 MG, BID
     Route: 065
  6. LORAZEPAM [Concomitant]
     Active Substance: LORAZEPAM
     Route: 065

REACTIONS (11)
  - Condition aggravated [Unknown]
  - Dysphonia [Unknown]
  - Moaning [Unknown]
  - Muscle spasms [Unknown]
  - Negative thoughts [Unknown]
  - Paranoia [Unknown]
  - Hyperhidrosis [Unknown]
  - Suicidal ideation [Unknown]
  - Musculoskeletal stiffness [Unknown]
  - Grunting [Unknown]
  - Confusional state [Unknown]

NARRATIVE: CASE EVENT DATE: 20241017
